FAERS Safety Report 4778473-4 (Version None)
Quarter: 2005Q3

REPORT INFORMATION
  Report Type: 
  Country: None (occurrence: None)
  Receive Date: 20050923
  Receipt Date: 20050923
  Transmission Date: 20060218
  Serious: Yes (Other)
  Sender: FDA-Public Use
  Company Number: None

PATIENT
  Sex: Female
  Weight: 85.2762 kg

DRUGS (3)
  1. REVLIMID [Suspect]
     Indication: MULTIPLE MYELOMA
     Dosage: 25 MG PO 1X/DAY
     Route: 048
     Dates: start: 20050101, end: 20050101
  2. DEXAMETHASONE [Concomitant]
  3. BIAXIN [Concomitant]

REACTIONS (1)
  - STEVENS-JOHNSON SYNDROME [None]
